FAERS Safety Report 18773435 (Version 1)
Quarter: 2021Q1

REPORT INFORMATION
  Report Type: Spontaneous
  Country: US (occurrence: US)
  Receive Date: 20210122
  Receipt Date: 20210122
  Transmission Date: 20210419
  Serious: Yes (Other)
  Sender: FDA-Public Use
  Company Number: US-GLAXOSMITHKLINE-US2021GSK014345

PATIENT
  Sex: Male

DRUGS (8)
  1. RANITIDINE. [Suspect]
     Active Substance: RANITIDINE
     Indication: CARDIAC DISORDER
  2. ZANTAC [Suspect]
     Active Substance: RANITIDINE HYDROCHLORIDE
     Indication: GASTRIC ULCER
     Dosage: UNK UNK, QD
     Route: 065
     Dates: start: 200202, end: 201702
  3. ZANTAC [Suspect]
     Active Substance: RANITIDINE HYDROCHLORIDE
     Indication: GASTRIC ULCER
     Dosage: UNK UNK, QD
     Route: 065
     Dates: start: 200202, end: 201702
  4. ZANTAC [Suspect]
     Active Substance: RANITIDINE HYDROCHLORIDE
     Indication: CARDIAC DISORDER
  5. RANITIDINE. [Suspect]
     Active Substance: RANITIDINE
     Indication: CARDIAC DISORDER
  6. ZANTAC [Suspect]
     Active Substance: RANITIDINE HYDROCHLORIDE
     Indication: CARDIAC DISORDER
  7. RANITIDINE. [Suspect]
     Active Substance: RANITIDINE
     Indication: GASTRIC ULCER
     Dosage: UNK, QD
     Route: 065
     Dates: start: 200202, end: 201702
  8. RANITIDINE. [Suspect]
     Active Substance: RANITIDINE
     Indication: GASTRIC ULCER
     Dosage: UNK, QD
     Route: 065
     Dates: start: 200202, end: 201702

REACTIONS (2)
  - Skin cancer [Unknown]
  - Bladder cancer [Unknown]
